FAERS Safety Report 9113142 (Version 1)
Quarter: 2013Q1

REPORT INFORMATION
  Report Type: Report from Study
  Country: US (occurrence: US)
  Receive Date: 20130211
  Receipt Date: 20130211
  Transmission Date: 20140127
  Serious: No
  Sender: FDA-Public Use
  Company Number: US-VERTEX PHARMACEUTICALS INC.-2013-000386

PATIENT
  Age: 59 None
  Sex: Female
  Weight: 58 kg

DRUGS (5)
  1. VX-950 (TELAPREVIR) [Suspect]
     Indication: HEPATITIS C
     Dosage: 750 MG, TID
     Route: 048
     Dates: start: 20130108
  2. RIBASPHERE [Suspect]
     Indication: HEPATITIS C
     Dosage: 600 MG AM + 400 MG PM
     Dates: start: 20130108
  3. PEGASYS [Suspect]
     Indication: HEPATITIS C
     Dosage: 180 ?G, QW
     Dates: start: 20130107
  4. REGLAN [Concomitant]
     Dosage: 10 MG, QID, PRN
  5. IBUPROFEN [Concomitant]
     Route: 048

REACTIONS (4)
  - Drug dose omission [Recovered/Resolved]
  - Abdominal discomfort [Unknown]
  - Rash [Unknown]
  - Vomiting [Not Recovered/Not Resolved]
